FAERS Safety Report 25244120 (Version 1)
Quarter: 2025Q2

REPORT INFORMATION
  Report Type: Spontaneous
  Country: SK (occurrence: SK)
  Receive Date: 20250428
  Receipt Date: 20250428
  Transmission Date: 20250717
  Serious: Yes (Other)
  Sender: AMGEN
  Company Number: SK-TEVA-VS-3321575

PATIENT
  Age: 82 Year
  Sex: Female

DRUGS (1)
  1. CINACALCET HYDROCHLORIDE [Suspect]
     Active Substance: CINACALCET HYDROCHLORIDE
     Indication: Hyperparathyroidism
     Dosage: TEVA 30 MG
     Route: 048
     Dates: start: 2025, end: 202504

REACTIONS (6)
  - Adverse drug reaction [Unknown]
  - Diarrhoea [Unknown]
  - Muscle spasms [Unknown]
  - Vision blurred [Unknown]
  - Blood pressure decreased [Unknown]
  - Drug effect less than expected [Unknown]

NARRATIVE: CASE EVENT DATE: 20250101
